FAERS Safety Report 12115653 (Version 3)
Quarter: 2016Q3

REPORT INFORMATION
  Report Type: Spontaneous
  Country: US (occurrence: US)
  Receive Date: 20160225
  Receipt Date: 20160829
  Transmission Date: 20161109
  Serious: Yes (Other)
  Sender: FDA-Public Use
  Company Number: US-PFIZER INC-2016111859

PATIENT
  Age: 75 Year
  Sex: Female
  Weight: 68.4 kg

DRUGS (15)
  1. NEURONTIN [Suspect]
     Active Substance: GABAPENTIN
     Dosage: 2 DF, DAILY
     Route: 048
     Dates: start: 20160201, end: 20160205
  2. NEURONTIN [Suspect]
     Active Substance: GABAPENTIN
     Dosage: SIX 300 TABLETS A DAY
     Route: 048
     Dates: start: 201508
  3. NEURONTIN [Suspect]
     Active Substance: GABAPENTIN
     Dosage: FOUR 300MG TABLETS A DAY
     Route: 048
     Dates: start: 20160122
  4. NEURONTIN [Suspect]
     Active Substance: GABAPENTIN
     Indication: TRIGEMINAL NEURALGIA
     Dosage: 300MG ONE OR TWO TABLETS TWICE A DAY
     Route: 048
     Dates: start: 20140114
  5. COENZYME Q10 [Concomitant]
     Active Substance: UBIDECARENONE
     Indication: MYOCARDIAL NECROSIS MARKER INCREASED
     Dosage: 100 MG, DAILY
     Route: 048
  6. VITAMIN B12 [Concomitant]
     Active Substance: CYANOCOBALAMIN
     Indication: VITAMIN SUPPLEMENTATION
     Dosage: 1000 MG, DAILY
  7. NEURONTIN [Suspect]
     Active Substance: GABAPENTIN
     Dosage: SEVEN 300MG TABLETS A DAY
     Route: 048
     Dates: start: 201509
  8. NEURONTIN [Suspect]
     Active Substance: GABAPENTIN
     Dosage: 3 DF, DAILY
     Route: 048
     Dates: start: 20160127
  9. DIOVAN [Concomitant]
     Active Substance: VALSARTAN
     Indication: HYPERTENSION
     Dosage: 160 MG, DAILY
     Route: 048
  10. ACIPHEX [Concomitant]
     Active Substance: RABEPRAZOLE SODIUM
     Indication: GASTROOESOPHAGEAL REFLUX DISEASE
     Dosage: 20 MG, DAILY
     Route: 048
  11. PRAVACHOL [Concomitant]
     Active Substance: PRAVASTATIN SODIUM
     Indication: BLOOD CHOLESTEROL INCREASED
     Dosage: 40 MG, DAILY
     Route: 048
  12. CALTRATE +D [Concomitant]
     Indication: MINERAL SUPPLEMENTATION
     Dosage: 600 MG, DAILY
     Route: 048
  13. SYNTHROID [Concomitant]
     Active Substance: LEVOTHYROXINE SODIUM
     Indication: THYROID DISORDER
     Dosage: 75 UG, DAILY
  14. VITAMIN D3 [Concomitant]
     Active Substance: CHOLECALCIFEROL
     Indication: VITAMIN D DEFICIENCY
     Dosage: 2000 IU, DAILY
     Route: 048
  15. CLARITIN [Concomitant]
     Active Substance: LORATADINE
     Indication: SEASONAL ALLERGY
     Dosage: 10 MG, DAILY
     Route: 048

REACTIONS (21)
  - Mental disorder [Recovering/Resolving]
  - Crying [Not Recovered/Not Resolved]
  - Gait disturbance [Unknown]
  - Depression [Recovering/Resolving]
  - Headache [Recovering/Resolving]
  - Diarrhoea [Recovered/Resolved]
  - Feeling abnormal [Recovering/Resolving]
  - Abdominal pain upper [Recovering/Resolving]
  - Asthenia [Not Recovered/Not Resolved]
  - Haemoglobin increased [Unknown]
  - Blood lactate dehydrogenase increased [Unknown]
  - Drug dependence [Unknown]
  - Withdrawal syndrome [Recovering/Resolving]
  - Drug ineffective for unapproved indication [Recovering/Resolving]
  - Thyroxine increased [Unknown]
  - Feeling of body temperature change [Not Recovered/Not Resolved]
  - Decreased appetite [Recovering/Resolving]
  - Tachycardia [Unknown]
  - Incoherent [Unknown]
  - Dizziness [Unknown]
  - Haematocrit increased [Unknown]

NARRATIVE: CASE EVENT DATE: 2015
